FAERS Safety Report 4868522-7 (Version None)
Quarter: 2005Q4

REPORT INFORMATION
  Report Type: 
  Country: None (occurrence: None)
  Receive Date: 20051223
  Receipt Date: 20051214
  Transmission Date: 20060501
  Serious: Yes (Hospitalization, Other)
  Sender: FDA-Public Use
  Company Number: 2005169778

PATIENT
  Sex: Female
  Weight: 72.5755 kg

DRUGS (3)
  1. DETROL LA [Suspect]
     Indication: AUTOMATIC BLADDER
     Dosage: 4 MG (4 MG, 1 IN 1 D), ORAL
     Route: 048
  2. DETROL LA [Suspect]
     Indication: NOCTURIA
     Dosage: 4 MG (4 MG, 1 IN 1 D), ORAL
     Route: 048
  3. ADVIL [Concomitant]

REACTIONS (3)
  - COLON CANCER [None]
  - DRUG EFFECT DECREASED [None]
  - DRY MOUTH [None]
